FAERS Safety Report 4394100-2 (Version None)
Quarter: 2004Q3

REPORT INFORMATION
  Report Type: 
  Country: None (occurrence: None)
  Receive Date: 20040708
  Receipt Date: 20040708
  Transmission Date: 20050211
  Serious: Yes (Disabling)
  Sender: FDA-Public Use
  Company Number: None

PATIENT
  Sex: Female
  Weight: 72.5755 kg

DRUGS (1)
  1. ZOLOFT [Suspect]

REACTIONS (9)
  - ADVERSE EVENT [None]
  - DRUG INEFFECTIVE [None]
  - FEAR [None]
  - HYPOAESTHESIA [None]
  - INSOMNIA [None]
  - NERVOUS SYSTEM DISORDER [None]
  - NIGHTMARE [None]
  - PAIN IN EXTREMITY [None]
  - SENSORY LOSS [None]
